FAERS Safety Report 7190683-8 (Version None)
Quarter: 2010Q4

REPORT INFORMATION
  Report Type: 
  Country: None (occurrence: None)
  Receive Date: 20101223
  Receipt Date: 20101217
  Transmission Date: 20110411
  Serious: Yes (Hospitalization, Other)
  Sender: FDA-Public Use
  Company Number: US-US-EMD SERONO, INC.-7006329

PATIENT
  Sex: Female

DRUGS (2)
  1. REBIF [Suspect]
     Indication: PRODUCT USED FOR UNKNOWN INDICATION
     Route: 058
     Dates: start: 20060113
  2. SOLU-MEDROL [Concomitant]
     Dates: start: 20060101

REACTIONS (5)
  - HAEMANGIOMA OF LIVER [None]
  - INJECTION SITE PAIN [None]
  - MICTURITION URGENCY [None]
  - PAIN [None]
  - UTERINE LEIOMYOMA [None]
